FAERS Safety Report 5634785-3 (Version None)
Quarter: 2008Q1

REPORT INFORMATION
  Report Type: 
  Country: None (occurrence: None)
  Receive Date: 20080131
  Receipt Date: 20071105
  Transmission Date: 20080703
  Serious: No
  Sender: FDA-Public Use
  Company Number: 163-21880-07110315

PATIENT
  Sex: Male

DRUGS (4)
  1. REVLIMID [Suspect]
     Indication: MULTIPLE MYELOMA
     Dosage: 15 MG, DAILY X 21 DAYS, ORAL ; 25 MG, DAILY X 21 DAYS, ORAL ; 10MG-15MG, DAILY X 21 DAYS, ORAL
     Route: 048
     Dates: start: 20061208, end: 20070801
  2. REVLIMID [Suspect]
     Indication: MULTIPLE MYELOMA
     Dosage: 15 MG, DAILY X 21 DAYS, ORAL ; 25 MG, DAILY X 21 DAYS, ORAL ; 10MG-15MG, DAILY X 21 DAYS, ORAL
     Route: 048
     Dates: start: 20070910, end: 20071001
  3. REVLIMID [Suspect]
     Indication: MULTIPLE MYELOMA
     Dosage: 15 MG, DAILY X 21 DAYS, ORAL ; 25 MG, DAILY X 21 DAYS, ORAL ; 10MG-15MG, DAILY X 21 DAYS, ORAL
     Route: 048
     Dates: start: 20071017
  4. DEXAMETHASONE TAB [Concomitant]

REACTIONS (2)
  - INSOMNIA [None]
  - MUSCLE SPASMS [None]
